FAERS Safety Report 6939976-7 (Version None)
Quarter: 2010Q3

REPORT INFORMATION
  Report Type: 
  Country: None (occurrence: None)
  Receive Date: 20100825
  Receipt Date: 20100812
  Transmission Date: 20110219
  Serious: Yes (Death, Hospitalization, Other)
  Sender: FDA-Public Use
  Company Number: DE-PFIZER INC-2010078156

PATIENT
  Age: 79 Year
  Sex: Female

DRUGS (8)
  1. REVATIO [Suspect]
     Indication: PULMONARY HYPERTENSION
     Dosage: 20 MG, 3X/DAY
     Route: 048
     Dates: start: 20070101, end: 20100521
  2. AMLODIPINE/ HYDROCHLOROTHIAZIDE/ VALSARTAN [Concomitant]
  3. AMARYL [Concomitant]
  4. SPIRONOLACTONE [Concomitant]
  5. ARCOXIA [Concomitant]
  6. NEXIUM [Concomitant]
  7. ASPIRIN [Concomitant]
  8. OXYBUTYNIN [Concomitant]

REACTIONS (10)
  - ABDOMINAL PAIN UPPER [None]
  - CONVULSION [None]
  - COR PULMONALE [None]
  - DECREASED APPETITE [None]
  - DIZZINESS [None]
  - GASTRITIS [None]
  - INTESTINAL INFARCTION [None]
  - TACHYARRHYTHMIA [None]
  - VOMITING [None]
  - WEIGHT DECREASED [None]
